FAERS Safety Report 8218950-7 (Version None)
Quarter: 2012Q1

REPORT INFORMATION
  Report Type: 
  Country: None (occurrence: None)
  Receive Date: 20120319
  Receipt Date: 20120309
  Transmission Date: 20120608
  Serious: Yes (Death, Hospitalization, Other)
  Sender: FDA-Public Use
  Company Number: DE-EISAI INC-E7389-02177-SPO-DE

PATIENT
  Age: 61 Year
  Sex: Female
  Weight: 68 kg

DRUGS (3)
  1. PANTOZOLE [Concomitant]
     Route: 048
  2. HALAVEN [Suspect]
     Route: 041
     Dates: start: 20120227, end: 20120227
  3. NEUROTRAT FORTE [Concomitant]
     Route: 048

REACTIONS (6)
  - NEUTROPENIA [None]
  - CACHEXIA [None]
  - NEOPLASM MALIGNANT [None]
  - MUCOSAL INFLAMMATION [None]
  - THROMBOCYTOPENIA [None]
  - JAUNDICE [None]
